FAERS Safety Report 14846788 (Version 3)
Quarter: 2018Q2

REPORT INFORMATION
  Report Type: Report from Study
  Country: US (occurrence: US)
  Receive Date: 20180504
  Receipt Date: 20180627
  Transmission Date: 20180711
  Serious: Yes (Hospitalization)
  Sender: FDA-Public Use
  Company Number: US-BAYER-2018-079505

PATIENT
  Age: 64 Year
  Sex: Male
  Weight: 90.7 kg

DRUGS (4)
  1. ZINC SULFATE [Concomitant]
     Active Substance: ZINC SULFATE\ZINC SULFATE ANHYDROUS
     Dosage: UNK
  2. NEXAVAR [Suspect]
     Active Substance: SORAFENIB
     Indication: HEPATOCELLULAR CARCINOMA
     Dosage: UNK
  3. NEXAVAR [Suspect]
     Active Substance: SORAFENIB
     Indication: HEPATOCELLULAR CARCINOMA
     Dosage: 400 MG, BID
     Route: 048
     Dates: start: 20180410, end: 2018
  4. NEXAVAR [Suspect]
     Active Substance: SORAFENIB
     Indication: HEPATOCELLULAR CARCINOMA
     Dosage: 400 MG, BID
     Route: 048
     Dates: start: 2018

REACTIONS (7)
  - Dry mouth [Unknown]
  - Prothrombin level increased [Unknown]
  - Muscular weakness [Unknown]
  - Oral pain [Unknown]
  - Dysgeusia [Unknown]
  - Hyperchlorhydria [Unknown]
  - Ageusia [Unknown]

NARRATIVE: CASE EVENT DATE: 2018
